FAERS Safety Report 8130558-0 (Version None)
Quarter: 2012Q1

REPORT INFORMATION
  Report Type: 
  Country: None (occurrence: None)
  Receive Date: 20120211
  Receipt Date: 20120206
  Transmission Date: 20120608
  Serious: Yes (Life-Threatening, Hospitalization)
  Sender: FDA-Public Use
  Company Number: PHHO2012GB002289

PATIENT
  Weight: 81.7 kg

DRUGS (8)
  1. FLECAINIDE [Concomitant]
     Indication: SUPRAVENTRICULAR TACHYCARDIA
     Dosage: 50 MG, QD
     Route: 048
  2. SECURON [Concomitant]
     Indication: SUPRAVENTRICULAR TACHYCARDIA
     Dosage: 120 MG, QD
     Dates: end: 20110118
  3. CALCIUM CARBONATE W/VITAMIN D NOS [Concomitant]
     Indication: PROPHYLAXIS
     Dosage: 125G/10MCG QD
     Route: 048
     Dates: start: 20070101
  4. SIMVASTATIN [Concomitant]
     Indication: BLOOD CHOLESTEROL INCREASED
     Dosage: 20 MG, QD
  5. ANASTROZOLE [Suspect]
     Indication: BREAST CANCER
     Dosage: 1 MG, UNK
     Route: 048
     Dates: start: 20070103
  6. ACETYLSALICYLIC ACID SRT [Suspect]
     Dosage: 2.5 MG, QD
     Route: 048
  7. VALSARTAN [Concomitant]
     Dosage: 500 MG, QD
  8. BENDROFLUMETHIAZIDE [Concomitant]
     Indication: HYPERTENSION
     Dosage: 25 MG, QD
     Route: 048

REACTIONS (4)
  - AORTIC ANEURYSM RUPTURE [None]
  - AORTIC DISSECTION [None]
  - AORTIC ANEURYSM [None]
  - LOWER RESPIRATORY TRACT INFECTION [None]
